FAERS Safety Report 5748471-2 (Version None)
Quarter: 2008Q2

REPORT INFORMATION
  Report Type: 
  Country: None (occurrence: None)
  Receive Date: 20080523
  Receipt Date: 20080514
  Transmission Date: 20081010
  Serious: Yes (Hospitalization, Other)
  Sender: FDA-Public Use
  Company Number: US-PFIZER INC-2008041462

PATIENT
  Sex: Female
  Weight: 59 kg

DRUGS (1)
  1. BEXTRA [Suspect]
     Indication: PAIN

REACTIONS (4)
  - DEMENTIA ALZHEIMER'S TYPE [None]
  - DEPRESSION [None]
  - MYOCARDIAL INFARCTION [None]
  - STRESS [None]
